FAERS Safety Report 7909141-5 (Version None)
Quarter: 2011Q4

REPORT INFORMATION
  Report Type: 
  Country: None (occurrence: None)
  Receive Date: 20111111
  Receipt Date: 20101118
  Transmission Date: 20120403
  Serious: No
  Sender: FDA-Public Use
  Company Number: US-GLAXOSMITHKLINE-A0893244A

PATIENT
  Age: 61 Year
  Sex: Female

DRUGS (8)
  1. PRINIVIL [Suspect]
  2. FISH OIL [Concomitant]
  3. VITAMIN D [Concomitant]
  4. HYDROCHLOROTHIAZIDE [Concomitant]
  5. COREG [Suspect]
     Indication: HYPERTENSION
     Dosage: 25MG TWICE PER DAY
     Route: 048
     Dates: start: 20040101, end: 20100801
  6. IRON SUPPLEMENT [Concomitant]
  7. COREG CR [Suspect]
     Indication: HYPERTENSION
     Dosage: 20MG TWICE PER DAY
     Route: 048
     Dates: start: 20100801
  8. PRINIVIL [Concomitant]

REACTIONS (3)
  - OVERDOSE [None]
  - DRUG EFFECT DECREASED [None]
  - BLOOD PRESSURE INCREASED [None]
